FAERS Safety Report 11447154 (Version 2)
Quarter: 2015Q3

REPORT INFORMATION
  Report Type: Spontaneous
  Country: FR (occurrence: FR)
  Receive Date: 20150902
  Receipt Date: 20150909
  Transmission Date: 20151125
  Serious: No
  Sender: FDA-Public Use
  Company Number: FR-BAXTER-2015BAX047548

PATIENT
  Age: 68 Year
  Sex: Male

DRUGS (9)
  1. MITOXANTRONE [Suspect]
     Active Substance: MITOXANTRONE HYDROCHLORIDE
     Indication: DIFFUSE LARGE B-CELL LYMPHOMA RECURRENT
     Dosage: FIRST COURSE, SINGLE DOSE (ONCE)
     Route: 041
     Dates: start: 20150721, end: 20150721
  2. ETOPOSIDE MYLAN [Suspect]
     Active Substance: ETOPOSIDE
     Indication: DIFFUSE LARGE B-CELL LYMPHOMA RECURRENT
     Dosage: FIRST COURSE, PER DAY
     Route: 041
     Dates: start: 20150721, end: 20150723
  3. ZYLORIC [Suspect]
     Active Substance: ALLOPURINOL
     Indication: PRODUCT USED FOR UNKNOWN INDICATION
     Dosage: 2 TABLETS/DAY
     Route: 048
     Dates: start: 20150713, end: 20150721
  4. UROMITEXAN 5 G/50 ML, SOLUTION INJECTABLE POUR PERFUSION EN FLACON [Suspect]
     Active Substance: MESNA
     Indication: PREMEDICATION
     Route: 065
     Dates: start: 20150721, end: 20150723
  5. ZYLORIC [Suspect]
     Active Substance: ALLOPURINOL
     Dosage: 3 TABLETS/DAY
     Route: 048
     Dates: start: 20150722, end: 20150723
  6. ZYLORIC [Suspect]
     Active Substance: ALLOPURINOL
     Dosage: 2 TABLETS/DAY
     Route: 048
     Dates: start: 20150724, end: 20150725
  7. ONDANSETRON [Suspect]
     Active Substance: ONDANSETRON
     Indication: PREMEDICATION
     Route: 042
     Dates: start: 20150721, end: 20150723
  8. HOLOXAN 2000 MG, POUDRE POUR USAGE PARENT?RAL [Suspect]
     Active Substance: IFOSFAMIDE
     Indication: DIFFUSE LARGE B-CELL LYMPHOMA RECURRENT
     Dosage: FIRST COURSE, PER DAY
     Route: 042
     Dates: start: 20150721, end: 20150723
  9. MABTHERA [Suspect]
     Active Substance: RITUXIMAB
     Indication: DIFFUSE LARGE B-CELL LYMPHOMA RECURRENT
     Dosage: FIRST COURSE, SINGLE DOSE (ONCE)
     Route: 041
     Dates: start: 20150720, end: 20150720

REACTIONS (3)
  - Hyperthermia [Unknown]
  - Rash pruritic [Recovering/Resolving]
  - Rash scarlatiniform [Recovering/Resolving]

NARRATIVE: CASE EVENT DATE: 20150723
